FAERS Safety Report 16290098 (Version 1)
Quarter: 2019Q2

REPORT INFORMATION
  Report Type: Spontaneous
  Country: FR (occurrence: FR)
  Receive Date: 20190509
  Receipt Date: 20190509
  Transmission Date: 20190711
  Serious: Yes (Other)
  Sender: FDA-Public Use
  Company Number: FR-009507513-1905FRA002509

PATIENT
  Age: 57 Year
  Sex: Male

DRUGS (5)
  1. ZERBAXA [Suspect]
     Active Substance: CEFTOLOZANE SULFATE\TAZOBACTAM SODIUM
     Indication: PSEUDOMONAS INFECTION
     Dosage: 2 G CEFTOLOZANE/1G TAZOBACTAM, TID
  2. VANCOMYCIN [Concomitant]
     Active Substance: VANCOMYCIN
     Dosage: UNK
  3. CANCIDAS [Concomitant]
     Active Substance: CASPOFUNGIN ACETATE
     Dosage: UNK
  4. CYMEVAN CAPSULES [Concomitant]
     Active Substance: GANCICLOVIR
     Dosage: UNK
     Route: 048
  5. ZERBAXA [Suspect]
     Active Substance: CEFTOLOZANE SULFATE\TAZOBACTAM SODIUM
     Indication: PATHOGEN RESISTANCE

REACTIONS (3)
  - Prescribed overdose [Unknown]
  - Hyperbilirubinaemia [Unknown]
  - Off label use [Unknown]
